FAERS Safety Report 11108368 (Version 2)
Quarter: 2015Q2

REPORT INFORMATION
  Report Type: Report from Study
  Country: CO (occurrence: CO)
  Receive Date: 20150512
  Receipt Date: 20150611
  Transmission Date: 20150821
  Serious: Yes (Life-Threatening, Other)
  Sender: FDA-Public Use
  Company Number: CO-BRISTOL-MYERS SQUIBB COMPANY-BMS-2015-029481

PATIENT
  Age: 49 Year
  Sex: Female

DRUGS (1)
  1. CETUXIMAB [Suspect]
     Active Substance: CETUXIMAB
     Indication: LUNG NEOPLASM MALIGNANT
     Dosage: 730 MG, QD
     Route: 042
     Dates: start: 20140820, end: 20150428

REACTIONS (3)
  - Malignant neoplasm progression [Unknown]
  - Vocal cord disorder [Unknown]
  - Off label use [Unknown]
